FAERS Safety Report 4554410-2 (Version None)
Quarter: 2005Q1

REPORT INFORMATION
  Report Type: 
  Country: None (occurrence: None)
  Receive Date: 20050118
  Receipt Date: 20041214
  Transmission Date: 20050727
  Serious: Yes (Hospitalization, Other)
  Sender: FDA-Public Use
  Company Number: US-BRISTOL-MYERS SQUIBB COMPANY-12795126

PATIENT
  Age: 67 Year
  Sex: Female
  Weight: 77 kg

DRUGS (18)
  1. ERBITUX [Suspect]
     Indication: COLON CANCER
     Dosage: ADMINISTERED OVER 1 HOUR
     Route: 042
     Dates: start: 20041207, end: 20041207
  2. ANZEMET [Concomitant]
     Indication: PREMEDICATION
     Route: 042
     Dates: start: 20041207, end: 20041207
  3. ATROPINE [Concomitant]
     Indication: PREMEDICATION
     Route: 042
     Dates: start: 20041207, end: 20041207
  4. BENADRYL [Concomitant]
     Indication: PREMEDICATION
     Route: 042
     Dates: start: 20041207, end: 20041207
  5. DECADRON [Concomitant]
     Indication: PREMEDICATION
     Route: 042
     Dates: start: 20041207, end: 20041207
  6. ALTACE [Concomitant]
  7. ASPIRIN [Concomitant]
  8. CAMPTOSAR [Concomitant]
     Route: 042
  9. CELEXA [Concomitant]
  10. COMPAZINE [Concomitant]
     Route: 048
  11. COREG [Concomitant]
  12. HUMALOG [Concomitant]
  13. LANTUS [Concomitant]
  14. NITROGLYCERIN [Concomitant]
  15. PREVACID [Concomitant]
  16. EPOGEN [Concomitant]
  17. SYNTHROID [Concomitant]
  18. ZOCOR [Concomitant]

REACTIONS (2)
  - CARDIAC FAILURE CONGESTIVE [None]
  - GRANULOCYTE COUNT DECREASED [None]
